FAERS Safety Report 4837060-X (Version None)
Quarter: 2005Q4

REPORT INFORMATION
  Report Type: 
  Country: None (occurrence: None)
  Receive Date: 20051121
  Receipt Date: 20051109
  Transmission Date: 20060501
  Serious: Yes (Hospitalization)
  Sender: FDA-Public Use
  Company Number: HQWYE486110NOV05

PATIENT
  Age: 19 Year
  Sex: Female

DRUGS (9)
  1. RAPAMUNE [Suspect]
     Indication: KIDNEY TRANSPLANT REJECTION
     Dosage: 1 MG 2X PER 1 DAY
     Route: 048
     Dates: start: 20041115
  2. PREDNISONE [Concomitant]
  3. SEPTRA [Concomitant]
  4. TACROLIMUS (TACROLIMUS) [Concomitant]
  5. IRON (IRON) [Concomitant]
  6. ENALAPRIL MALEATE [Concomitant]
  7. LIPITOR [Concomitant]
  8. ARANESP [Concomitant]
  9. LOSARTAN POTASSIUM [Concomitant]

REACTIONS (3)
  - POST PROCEDURAL HAEMORRHAGE [None]
  - RENAL HAEMORRHAGE [None]
  - URINE ANALYSIS ABNORMAL [None]
